FAERS Safety Report 6135536-9 (Version None)
Quarter: 2009Q1

REPORT INFORMATION
  Report Type: 
  Country: None (occurrence: None)
  Receive Date: 20090327
  Receipt Date: 20090319
  Transmission Date: 20090719
  Serious: Yes (Other)
  Sender: FDA-Public Use
  Company Number: B0566961A

PATIENT
  Sex: Male

DRUGS (9)
  1. AVANDIA [Suspect]
     Indication: DRUG USE FOR UNKNOWN INDICATION
     Dosage: 4MG PER DAY
     Route: 048
     Dates: start: 20080120, end: 20090310
  2. GLIMEPIRIDE [Concomitant]
     Dosage: 3MG TWICE PER DAY
     Route: 048
  3. FUROSEMIDE [Concomitant]
     Route: 065
  4. FENPROCOUMON [Concomitant]
     Route: 048
     Dates: start: 20090117
  5. PANTOPRAZOL [Concomitant]
     Route: 048
  6. SOTALOL HYDROCHLORIDE [Concomitant]
     Route: 048
  7. LIPITOR [Concomitant]
     Route: 048
  8. PERINDOPRIL ERBUMINE [Concomitant]
     Route: 048
  9. ZOPICLON [Concomitant]
     Route: 048

REACTIONS (3)
  - CARDIAC FAILURE [None]
  - DYSPNOEA [None]
  - PLEURAL EFFUSION [None]
